FAERS Safety Report 6359227-4 (Version None)
Quarter: 2009Q3

REPORT INFORMATION
  Report Type: 
  Country: None (occurrence: None)
  Receive Date: 20090917
  Receipt Date: 20090907
  Transmission Date: 20100115
  Serious: Yes (Other)
  Sender: FDA-Public Use
  Company Number: PHHY2009JP28308

PATIENT
  Age: 79 Year
  Sex: Female

DRUGS (2)
  1. LAMISIL [Suspect]
     Dosage: 125 MG, QD
     Route: 048
  2. LAMISIL [Suspect]
     Dosage: 62.5 MG, QD
     Route: 048

REACTIONS (2)
  - GLOSSITIS [None]
  - PAIN [None]
